FAERS Safety Report 5485823-2 (Version None)
Quarter: 2007Q4

REPORT INFORMATION
  Report Type: 
  Country: None (occurrence: None)
  Receive Date: 20071015
  Receipt Date: 20071004
  Transmission Date: 20080405
  Serious: Yes (Other)
  Sender: FDA-Public Use
  Company Number: PT-JNJFOC-20071000312

PATIENT
  Age: 56 Year
  Sex: Female

DRUGS (3)
  1. INFLIXIMAB [Suspect]
     Indication: RHEUMATOID ARTHRITIS
     Dosage: 180 MG TO 200 MG PER INFUSION.
     Route: 042
  2. METHOTREXATE [Concomitant]
  3. PREDNISOLONE [Concomitant]
     Indication: PREMEDICATION

REACTIONS (4)
  - INFUSION RELATED REACTION [None]
  - PRURITUS [None]
  - RASH [None]
  - RASH ERYTHEMATOUS [None]
